FAERS Safety Report 25625238 (Version 2)
Quarter: 2025Q3

REPORT INFORMATION
  Report Type: Spontaneous
  Country: EU (occurrence: EU)
  Receive Date: 20250731
  Receipt Date: 20250821
  Transmission Date: 20251021
  Serious: Yes (Life-Threatening, Hospitalization)
  Sender: TEVA
  Company Number: EU-TEVA-VS-3355808

PATIENT
  Age: 50 Year
  Sex: Male

DRUGS (12)
  1. MYCOPHENOLATE MOFETIL [Suspect]
     Active Substance: MYCOPHENOLATE MOFETIL
     Indication: Prophylaxis against graft versus host disease
     Route: 065
  2. VINCRISTINE [Suspect]
     Active Substance: VINCRISTINE
     Indication: Precursor T-lymphoblastic lymphoma/leukaemia
     Route: 065
  3. CYCLOPHOSPHAMIDE [Suspect]
     Active Substance: CYCLOPHOSPHAMIDE
     Indication: Precursor T-lymphoblastic lymphoma/leukaemia
     Route: 065
  4. CYCLOPHOSPHAMIDE [Suspect]
     Active Substance: CYCLOPHOSPHAMIDE
     Indication: Precursor T-lymphoblastic lymphoma/leukaemia
     Route: 065
  5. NELARABINE [Suspect]
     Active Substance: NELARABINE
     Indication: Precursor T-lymphoblastic lymphoma/leukaemia
     Route: 065
  6. DEXAMETHASONE ACETATE [Suspect]
     Active Substance: DEXAMETHASONE ACETATE
     Indication: Precursor T-lymphoblastic lymphoma/leukaemia
     Route: 042
     Dates: start: 202204
  7. DEXAMETHASONE ACETATE [Suspect]
     Active Substance: DEXAMETHASONE ACETATE
     Indication: Precursor T-lymphoblastic lymphoma/leukaemia
     Route: 065
  8. DOXORUBICIN [Suspect]
     Active Substance: DOXORUBICIN
     Indication: Precursor T-lymphoblastic lymphoma/leukaemia
     Route: 065
  9. TACROLIMUS [Suspect]
     Active Substance: TACROLIMUS
     Indication: Prophylaxis against graft versus host disease
     Route: 065
  10. TOLODODEKIN ALFA [Suspect]
     Active Substance: TOLODODEKIN ALFA
     Indication: Precursor T-lymphoblastic lymphoma/leukaemia
     Dosage: ON DAYS 1, 8, AND 15 IN A 21-DAY CYCLE; RECEIVED 3 CYCLES
     Route: 042
     Dates: start: 202204
  11. BORTEZOMIB [Suspect]
     Active Substance: BORTEZOMIB
     Indication: Precursor T-lymphoblastic lymphoma/leukaemia
     Dosage: INFUSION ON DAYS 1, 4, 8, AND 11 IN A 21-DAY CYCLE; RECEIVED 3 CYCLES
     Route: 058
     Dates: start: 202204
  12. FLUDARABINE [Suspect]
     Active Substance: FLUDARABINE PHOSPHATE
     Indication: Bone marrow conditioning regimen
     Route: 065

REACTIONS (11)
  - Cough [Recovering/Resolving]
  - Febrile neutropenia [Recovering/Resolving]
  - Off label use [Unknown]
  - Thrombocytopenia [Unknown]
  - Bronchopulmonary aspergillosis [Recovering/Resolving]
  - Infusion related reaction [Recovering/Resolving]
  - Anaemia [Unknown]
  - Clostridium difficile infection [Recovering/Resolving]
  - Abdominal infection [Recovering/Resolving]
  - Therapy non-responder [Unknown]
  - Rhinitis [Recovering/Resolving]
